FAERS Safety Report 11632012 (Version 2)
Quarter: 2015Q4

REPORT INFORMATION
  Report Type: Spontaneous
  Country: BR (occurrence: BR)
  Receive Date: 20151015
  Receipt Date: 20151111
  Transmission Date: 20160304
  Serious: Yes (Other)
  Sender: FDA-Public Use
  Company Number: PHHY2015BR123689

PATIENT
  Sex: Female
  Weight: 49 kg

DRUGS (2)
  1. ALENIA                             /01538101/ [Suspect]
     Active Substance: BUDESONIDE\FORMOTEROL FUMARATE
     Indication: PRODUCT USED FOR UNKNOWN INDICATION
     Dosage: UNK
     Route: 065
  2. FORASEQ [Suspect]
     Active Substance: BUDESONIDE\FORMOTEROL FUMARATE
     Indication: BRONCHITIS
     Dosage: 1 DF, QD
     Route: 048
     Dates: start: 2007, end: 2008

REACTIONS (11)
  - Bronchitis [Unknown]
  - Cough [Unknown]
  - Muscle rigidity [Unknown]
  - Tremor [Unknown]
  - Fatigue [Unknown]
  - Carpal tunnel syndrome [Recovered/Resolved]
  - Pain in extremity [Unknown]
  - Wheezing [Unknown]
  - Muscular weakness [Unknown]
  - Productive cough [Unknown]
  - Off label use [Unknown]

NARRATIVE: CASE EVENT DATE: 2007
